FAERS Safety Report 16558362 (Version 4)
Quarter: 2020Q3

REPORT INFORMATION
  Report Type: Report from Study
  Country: DE (occurrence: DE)
  Receive Date: 20190711
  Receipt Date: 20200909
  Transmission Date: 20201102
  Serious: Yes (Hospitalization, Other)
  Sender: FDA-Public Use
  Company Number: DE-MYLANLABS-2019M1063216

PATIENT
  Sex: Male

DRUGS (17)
  1. RIXATHON [Suspect]
     Active Substance: RITUXIMAB
     Indication: PRODUCT USED FOR UNKNOWN INDICATION
     Dosage: 1000 UNK
     Route: 042
     Dates: start: 201801
  2. METHOTREXATE MYLAN [Suspect]
     Active Substance: METHOTREXATE SODIUM
     Indication: PRODUCT USED FOR UNKNOWN INDICATION
     Dosage: 25 MG, UNK
     Route: 065
     Dates: start: 20160115
  3. METHOTREXATE MYLAN [Suspect]
     Active Substance: METHOTREXATE SODIUM
     Dosage: 25 MILLIGRAM
     Route: 065
     Dates: start: 20160721
  4. METHOTREXATE MYLAN [Suspect]
     Active Substance: METHOTREXATE SODIUM
     Dosage: 25 UNK
     Route: 065
  5. METHOTREXATE MYLAN [Suspect]
     Active Substance: METHOTREXATE SODIUM
     Dosage: 10 UNK
     Route: 065
  6. RIXATHON [Suspect]
     Active Substance: RITUXIMAB
     Dosage: 1000 MILLIGRAM
     Route: 042
     Dates: start: 20190401
  7. RIXATHON [Suspect]
     Active Substance: RITUXIMAB
     Dosage: UNK
     Route: 042
  8. METHOTREXATE MYLAN [Suspect]
     Active Substance: METHOTREXATE SODIUM
     Dosage: 25 MILLIGRAM
     Route: 065
     Dates: start: 20170116
  9. METHOTREXATE MYLAN [Suspect]
     Active Substance: METHOTREXATE SODIUM
     Dosage: 25 MILLIGRAM
     Route: 065
     Dates: start: 20170910
  10. MABTHERA [Suspect]
     Active Substance: RITUXIMAB
     Indication: PRODUCT USED FOR UNKNOWN INDICATION
     Dosage: 1000 MILLIGRAM
     Route: 065
     Dates: start: 201601
  11. RIXATHON [Suspect]
     Active Substance: RITUXIMAB
     Dosage: 1000 UNK
     Route: 042
     Dates: start: 201808
  12. ROACTEMRA [Concomitant]
     Active Substance: TOCILIZUMAB
     Indication: PRODUCT USED FOR UNKNOWN INDICATION
     Dosage: 162 MG, UNK
     Route: 065
     Dates: start: 201711, end: 201712
  13. METHOTREXATE MYLAN [Suspect]
     Active Substance: METHOTREXATE SODIUM
     Dosage: 10 MILLIGRAM, QW
     Route: 065
     Dates: start: 20180112
  14. METHOTREXATE MYLAN [Suspect]
     Active Substance: METHOTREXATE SODIUM
     Dosage: 10 MG, QW
     Route: 065
  15. METHOTREXATE MYLAN [Suspect]
     Active Substance: METHOTREXATE SODIUM
     Dosage: 25 MILLIGRAM
     Route: 065
     Dates: start: 20160517
  16. RIXATHON [Suspect]
     Active Substance: RITUXIMAB
     Dosage: 1000 UNK
     Route: 042
     Dates: start: 201904
  17. MABTHERA [Suspect]
     Active Substance: RITUXIMAB
     Dosage: 1000 MILLIGRAM
     Route: 065
     Dates: start: 201701

REACTIONS (17)
  - Multifocal motor neuropathy [Unknown]
  - Peripheral arterial occlusive disease [Recovered/Resolved]
  - Visual impairment [Unknown]
  - Osteoarthritis [Not Recovered/Not Resolved]
  - Paresis [Unknown]
  - Atrophy [Unknown]
  - Wound [Unknown]
  - Paraesthesia [Unknown]
  - Endocarditis [Unknown]
  - Axonal neuropathy [Unknown]
  - Cubital tunnel syndrome [Unknown]
  - Intervertebral disc protrusion [Recovered/Resolved]
  - Vasculitis [Unknown]
  - Asthenia [Unknown]
  - Osteochondrosis [Recovered/Resolved]
  - Giant cell arteritis [Unknown]
  - Peripheral sensory neuropathy [Unknown]

NARRATIVE: CASE EVENT DATE: 20171120
